FAERS Safety Report 13350403 (Version 1)
Quarter: 2017Q1

REPORT INFORMATION
  Report Type: Report from Study
  Country: CA (occurrence: CA)
  Receive Date: 20170320
  Receipt Date: 20170320
  Transmission Date: 20170429
  Serious: Yes (Other)
  Sender: FDA-Public Use
  Company Number: CA-JNJFOC-20170313137

PATIENT
  Age: 17 Year
  Sex: Female
  Weight: 59.5 kg

DRUGS (3)
  1. REMICADE [Suspect]
     Active Substance: INFLIXIMAB
     Indication: COLITIS ULCERATIVE
     Route: 042
  2. REMICADE [Suspect]
     Active Substance: INFLIXIMAB
     Indication: COLITIS ULCERATIVE
     Route: 042
     Dates: start: 20130509
  3. REMICADE [Suspect]
     Active Substance: INFLIXIMAB
     Indication: COLITIS ULCERATIVE
     Route: 042
     Dates: start: 20170311

REACTIONS (5)
  - Rectal haemorrhage [Recovering/Resolving]
  - Off label use [Unknown]
  - Abdominal pain [Unknown]
  - General physical health deterioration [Unknown]
  - Product use issue [Unknown]

NARRATIVE: CASE EVENT DATE: 201702
